FAERS Safety Report 7001080-X (Version None)
Quarter: 2010Q3

REPORT INFORMATION
  Report Type: 
  Country: None (occurrence: None)
  Receive Date: 20100920
  Receipt Date: 20100909
  Transmission Date: 20110219
  Serious: Yes (Other)
  Sender: FDA-Public Use
  Company Number: FR-ASTRAZENECA-2010SE42980

PATIENT
  Age: 941 Month
  Sex: Female

DRUGS (5)
  1. ARIMIDEX [Suspect]
     Indication: BREAST CANCER
     Route: 048
     Dates: start: 20091209, end: 20100501
  2. BIPRETERAX [Concomitant]
     Dates: start: 20080601
  3. VASTAREL [Concomitant]
     Dates: start: 20080601
  4. KARDEGIC [Concomitant]
     Dates: start: 20080201
  5. LESCOL LP [Concomitant]
     Dates: start: 20080601

REACTIONS (4)
  - ARTHRALGIA [None]
  - ASTHENIA [None]
  - DYSPNOEA [None]
  - HYPERTENSION [None]
